FAERS Safety Report 6361969-1 (Version None)
Quarter: 2009Q3

REPORT INFORMATION
  Report Type: 
  Country: None (occurrence: None)
  Receive Date: 20090918
  Receipt Date: 20090916
  Transmission Date: 20100115
  Serious: Yes (Hospitalization, Other)
  Sender: FDA-Public Use
  Company Number: US-B.I. PHARMACEUTICALS,INC./RIDGEFIELD-2007-BP-24574BP

PATIENT
  Age: 60 Year
  Sex: Male
  Weight: 137 kg

DRUGS (2)
  1. SPIRIVA [Suspect]
     Indication: CHRONIC OBSTRUCTIVE PULMONARY DISEASE
     Dosage: 18 MCG
     Route: 055
     Dates: start: 20010101
  2. SPIRIVA [Suspect]
     Indication: POST-TRAUMATIC STRESS DISORDER

REACTIONS (7)
  - BLOOD POTASSIUM INCREASED [None]
  - INFLAMMATION [None]
  - PROSTATE CANCER [None]
  - PROSTATIC DISORDER [None]
  - PROSTATIC SPECIFIC ANTIGEN ABNORMAL [None]
  - PROSTATOMEGALY [None]
  - PROTEIN TOTAL INCREASED [None]
